FAERS Safety Report 20354372 (Version 1)
Quarter: 2022Q1

REPORT INFORMATION
  Report Type: Spontaneous
  Country: US (occurrence: None)
  Receive Date: 20220120
  Receipt Date: 20220120
  Transmission Date: 20220424
  Serious: Yes (Hospitalization, Other)
  Sender: FDA-Public Use
  Company Number: US-Hikma Pharmaceuticals USA Inc.-US-H14001-22-00210

PATIENT
  Age: 12 Year
  Sex: Female
  Weight: 49.8 kg

DRUGS (15)
  1. IRINOTECAN [Suspect]
     Active Substance: IRINOTECAN
     Indication: Alveolar rhabdomyosarcoma
     Dosage: 50 MG/M2, CYCLIC (CYCLES 1-4: OVER 90 MINUTES ON DAYS 1-5 OF CYCLES 2 AND 4)
     Route: 041
  2. IRINOTECAN [Suspect]
     Active Substance: IRINOTECAN
     Dosage: 50 MG/M2, CYCLIC (CYCLES 1-4: OVER 90 MINUTES ON DAYS 1-5 OF CYCLES 2 AND 4)
     Route: 041
  3. IRINOTECAN [Suspect]
     Active Substance: IRINOTECAN
     Route: 065
     Dates: start: 20200703
  4. DACTINOMYCIN [Suspect]
     Active Substance: DACTINOMYCIN
     Indication: Alveolar rhabdomyosarcoma
     Dosage: 0.05 MG/KG, CYCLIC (CYCLES 1-4: OVER 1-5 MINUTES ON DAY 1 OF CYCLES 1 AND 3)
     Route: 042
  5. DACTINOMYCIN [Suspect]
     Active Substance: DACTINOMYCIN
     Dosage: 0.05 MG/KG, CYCLIC (CYCLES 5-10: OVER 1-5 MINUTES ON DAY 1 OF CYCLES 5, 8 AND 10)
     Route: 042
  6. DACTINOMYCIN [Suspect]
     Active Substance: DACTINOMYCIN
     Route: 065
     Dates: start: 20200929
  7. TEMSIROLIMUS [Suspect]
     Active Substance: TEMSIROLIMUS
     Indication: Alveolar rhabdomyosarcoma
     Dosage: 15 MG/M2, CYCLIC (CYCLES: 1-4: OVER 30-60 MINUTES ON DAYS 1, 8, AND 15)
     Route: 042
     Dates: start: 20200428
  8. TEMSIROLIMUS [Suspect]
     Active Substance: TEMSIROLIMUS
     Dosage: 15 MG/M2, CYCLIC (CYCLES: 5-10: OVER 30-60 MINUTES ONDAYS 1, 8, AND 15 OF CYCLES 8, 9 AND 10)
     Route: 042
  9. TEMSIROLIMUS [Suspect]
     Active Substance: TEMSIROLIMUS
     Route: 065
     Dates: start: 20201006
  10. VINCRISTINE SULFATE [Suspect]
     Active Substance: VINCRISTINE SULFATE
     Indication: Alveolar rhabdomyosarcoma
     Dosage: 1.5 MG/M2, CYCLIC (CYCLES 1-4: OVER 1 MINUTE OR INFUSION VIA MINIBAG ON DAYS 1, 8, AND 15)
     Route: 041
  11. VINCRISTINE SULFATE [Suspect]
     Active Substance: VINCRISTINE SULFATE
     Dosage: 1.5 MG/M2, CYCLIC (CYCLES 5-10: OVER 1 MINUTE OR INFUSION VIA MINIBAG ON DAY 1 OF CYCLES 5 AND 10, O
     Route: 041
  12. VINCRISTINE SULFATE [Suspect]
     Active Substance: VINCRISTINE SULFATE
     Route: 065
     Dates: start: 20200106
  13. CYCLOPHOSPHAMIDE [Suspect]
     Active Substance: CYCLOPHOSPHAMIDE
     Indication: Alveolar rhabdomyosarcoma
     Dosage: 1200 MG/M2, CYCLIC (CYCLES 1-4: OVER 60 MINUTES ON DAY 1 OF CYCLES 1 AND 3)
     Route: 042
  14. CYCLOPHOSPHAMIDE [Suspect]
     Active Substance: CYCLOPHOSPHAMIDE
     Dosage: 1200 MG/M2, CYCLIC (CYCLES 5-10: OVER 60 MINUTES ON DAY 1 OF CYCLES 5, 8 AND 10)
     Route: 042
  15. CYCLOPHOSPHAMIDE [Suspect]
     Active Substance: CYCLOPHOSPHAMIDE
     Route: 065
     Dates: start: 20200929

REACTIONS (5)
  - Stomatitis [Recovering/Resolving]
  - Oral pain [Unknown]
  - Eating disorder [Unknown]
  - Lip ulceration [Unknown]
  - Oral disorder [Unknown]

NARRATIVE: CASE EVENT DATE: 20201013
